FAERS Safety Report 22285093 (Version 1)
Quarter: 2023Q2

REPORT INFORMATION
  Report Type: Spontaneous
  Country: US (occurrence: None)
  Receive Date: 20230503
  Receipt Date: 20230503
  Transmission Date: 20230722
  Serious: Yes (Death)
  Sender: FDA-Public Use
  Company Number: None

PATIENT
  Sex: Male

DRUGS (2)
  1. RETEVMO [Suspect]
     Active Substance: SELPERCATINIB
     Indication: Lung neoplasm malignant
     Dosage: FREQUENCY : AS DIRECTED;?
     Route: 048
     Dates: start: 20210723
  2. RETEVMO [Suspect]
     Active Substance: SELPERCATINIB
     Dosage: FREQUENCY : AS DIRECTED;?
     Route: 048

REACTIONS (1)
  - Death [None]
